FAERS Safety Report 4779679-0 (Version None)
Quarter: 2005Q3

REPORT INFORMATION
  Report Type: 
  Country: None (occurrence: None)
  Receive Date: 20050914
  Receipt Date: 20041013
  Transmission Date: 20060218
  Serious: Yes (Death)
  Sender: FDA-Public Use
  Company Number: 150-20785-04060711

PATIENT
  Sex: 0

DRUGS (8)
  1. THALIDOMIDE - PHARMION (THALIDOMIDE) (CAPSULES) [Suspect]
     Dosage: ORAL
     Route: 048
  2. OMEPRAZOLE [Concomitant]
  3. EMULAX (PER-COLACE) (TABLETS) [Concomitant]
  4. IMPUGAN (FUROSEMIDE) (TABLETS) [Concomitant]
  5. SELOKEN-ZOC (METOPROLOL SUCCINATE) (TABLETS) [Concomitant]
  6. SOLU-CORTEF (HYDROCORTISONE SODIUM SUCCINATE) (UNKNOWN) [Concomitant]
  7. ALLOPURINOL (ALLOPURINOL) (TABLETS) [Concomitant]
  8. ALVEDON (PARACETAMOL) (TABLETS) [Concomitant]

REACTIONS (1)
  - DISEASE PROGRESSION [None]
